FAERS Safety Report 14492364 (Version 6)
Quarter: 2019Q2

REPORT INFORMATION
  Report Type: Spontaneous
  Country: CA (occurrence: CA)
  Receive Date: 20180206
  Receipt Date: 20190626
  Transmission Date: 20190711
  Serious: Yes (Hospitalization)
  Sender: FDA-Public Use
  Company Number: CA-CELLTRION INC.-2017CA003616

PATIENT

DRUGS (10)
  1. INFLECTRA [Suspect]
     Active Substance: INFLIXIMAB-DYYB
     Dosage: 300MG EVERY 8 WEEKS
     Route: 042
     Dates: start: 20180504
  2. INFLECTRA [Suspect]
     Active Substance: INFLIXIMAB-DYYB
     Dosage: 300MG EVERY 8 WEEKS
     Route: 042
     Dates: start: 20190321
  3. INFLECTRA [Suspect]
     Active Substance: INFLIXIMAB-DYYB
     Dosage: 300MG EVERY 8 WEEKS
     Route: 042
     Dates: start: 20190114
  4. HYDROCORTISONE. [Concomitant]
     Active Substance: HYDROCORTISONE
     Indication: PREMEDICATION
     Dosage: 100 MG, UNK
     Route: 042
     Dates: start: 20170313
  5. INFLECTRA [Suspect]
     Active Substance: INFLIXIMAB-DYYB
     Dosage: 300MG EVERY 8 WEEKS
     Route: 042
     Dates: start: 20190429
  6. INFLECTRA [Suspect]
     Active Substance: INFLIXIMAB-DYYB
     Dosage: 300MG EVERY 8 WEEKS
     Route: 042
     Dates: start: 20190612
  7. INFLECTRA [Suspect]
     Active Substance: INFLIXIMAB-DYYB
     Indication: COLITIS ULCERATIVE
     Dosage: 255 MG (EVERY 0,2,6 WEEKS THEN EVERY 8 WEEKS)
     Route: 042
     Dates: start: 20170313, end: 20180112
  8. AZATHIOPRINE. [Concomitant]
     Active Substance: AZATHIOPRINE
     Dosage: UNK
  9. PENTASA [Concomitant]
     Active Substance: MESALAMINE
     Dosage: UNK
     Route: 054
  10. ACETAMINOPHEN. [Concomitant]
     Active Substance: ACETAMINOPHEN
     Indication: PREMEDICATION
     Dosage: 650 MG, UNK
     Route: 048
     Dates: start: 20170313

REACTIONS (7)
  - Mastitis [Recovered/Resolved]
  - Malaise [Unknown]
  - Headache [Not Recovered/Not Resolved]
  - Blood pressure increased [Unknown]
  - Influenza [Unknown]
  - Off label use [Unknown]
  - Dizziness [Recovering/Resolving]

NARRATIVE: CASE EVENT DATE: 20170619
